FAERS Safety Report 5273717-7 (Version None)
Quarter: 2007Q1

REPORT INFORMATION
  Report Type: 
  Country: None (occurrence: None)
  Receive Date: 20070321
  Receipt Date: 20070321
  Transmission Date: 20070707
  Serious: Yes (Other)
  Sender: FDA-Public Use
  Company Number: None

PATIENT
  Age: 59 Year
  Sex: Male

DRUGS (1)
  1. ATENOLOL [Suspect]
     Indication: VENTRICULAR EXTRASYSTOLES
     Dosage: TAKE 1 TABLET DAILY

REACTIONS (2)
  - TREMOR [None]
  - VENTRICULAR EXTRASYSTOLES [None]
